FAERS Safety Report 16669082 (Version 1)
Quarter: 2019Q3

REPORT INFORMATION
  Report Type: Spontaneous
  Country: GB (occurrence: GB)
  Receive Date: 20190805
  Receipt Date: 20190805
  Transmission Date: 20191004
  Serious: Yes (Hospitalization, Disabling, Other)
  Sender: FDA-Public Use
  Company Number: GB-ELI_LILLY_AND_COMPANY-GB201907013531

PATIENT
  Age: 21 Year
  Sex: Female
  Weight: 87 kg

DRUGS (1)
  1. DULOXETINE HYDROCHLORIDE. [Suspect]
     Active Substance: DULOXETINE HYDROCHLORIDE
     Indication: PAIN
     Dosage: 0.16 MG, UNKNOWN
     Route: 048
     Dates: start: 20150101

REACTIONS (3)
  - Neuralgia [Not Recovered/Not Resolved]
  - Dermatitis allergic [Recovered/Resolved with Sequelae]
  - Drug withdrawal syndrome [Unknown]

NARRATIVE: CASE EVENT DATE: 20150301
